FAERS Safety Report 4892235-9 (Version None)
Quarter: 2006Q1

REPORT INFORMATION
  Report Type: 
  Country: None (occurrence: None)
  Receive Date: 20060125
  Receipt Date: 20060125
  Transmission Date: 20060701
  Serious: No
  Sender: FDA-Public Use
  Company Number: None

PATIENT
  Age: 37 Year
  Sex: Female
  Weight: 45.3597 kg

DRUGS (2)
  1. DEPO-MEDROL [Suspect]
     Indication: INTERVERTEBRAL DISC PROTRUSION
     Dosage: 80MG.  ONCE   EPIDURAL
     Route: 008
     Dates: start: 20050207, end: 20050207
  2. KENALOG [Suspect]
     Indication: INTERVERTEBRAL DISC PROTRUSION
     Dosage: 40MG.  ONCE   EPIDURAL
     Route: 008
     Dates: start: 20050207, end: 20050207

REACTIONS (11)
  - DYSSTASIA [None]
  - HYPOAESTHESIA [None]
  - IMPAIRED DRIVING ABILITY [None]
  - INJECTION SITE PAIN [None]
  - MONOPLEGIA [None]
  - NAUSEA [None]
  - NERVOUS SYSTEM DISORDER [None]
  - PAIN [None]
  - PARAESTHESIA [None]
  - URINARY INCONTINENCE [None]
  - VERTIGO [None]
